FAERS Safety Report 10170374 (Version 1)
Quarter: 2014Q2

REPORT INFORMATION
  Report Type: Spontaneous
  Country: CA (occurrence: CA)
  Receive Date: 20140513
  Receipt Date: 20140513
  Transmission Date: 20141212
  Serious: Yes (Life-Threatening, Hospitalization)
  Sender: FDA-Public Use
  Company Number: PHHY2014CA055584

PATIENT
  Age: 82 Year
  Sex: Male

DRUGS (4)
  1. CLARITHROMYCIN SANDOZ [Suspect]
     Dosage: 500 MG, BID
     Route: 048
  2. MESTINON [Suspect]
     Dosage: 360 MG, BID
     Route: 048
  3. LOPERAMIDE [Concomitant]
     Dosage: UNK UKN, UNK
  4. SALBUTAMOL [Concomitant]
     Dosage: UNK UKN, UNK

REACTIONS (3)
  - Nerve conduction studies abnormal [Recovered/Resolved]
  - Respiratory failure [Recovered/Resolved]
  - Stress cardiomyopathy [Recovered/Resolved]
